FAERS Safety Report 24644559 (Version 1)
Quarter: 2024Q4

REPORT INFORMATION
  Report Type: Spontaneous
  Country: US (occurrence: US)
  Receive Date: 20241121
  Receipt Date: 20241121
  Transmission Date: 20250115
  Serious: No
  Sender: BOEHRINGER INGELHEIM
  Company Number: US-Komodo Health-a23aa000004MufZAAS

PATIENT
  Sex: Female

DRUGS (2)
  1. GILOTRIF [Suspect]
     Active Substance: AFATINIB
     Indication: Product used for unknown indication
     Dosage: DAILY DOSE: 20 MILLIGRAM(S)
  2. GILOTRIF [Suspect]
     Active Substance: AFATINIB
     Dosage: DAILY DOSE: 30 MILLIGRAM(S)

REACTIONS (1)
  - Drug ineffective [Unknown]
